FAERS Safety Report 24117143 (Version 1)
Quarter: 2024Q3

REPORT INFORMATION
  Report Type: Spontaneous
  Country: GB (occurrence: GB)
  Receive Date: 20240722
  Receipt Date: 20240722
  Transmission Date: 20241017
  Serious: Yes (Other)
  Sender: AUROBINDO
  Company Number: GB-GE HEALTHCARE-2024CSU007489

PATIENT
  Age: 75 Year
  Sex: Male
  Weight: 92 kg

DRUGS (3)
  1. VENLAFAXINE [Suspect]
     Active Substance: VENLAFAXINE HYDROCHLORIDE
     Indication: Anxiety
     Dosage: 187.5 MILLILITER, ONCE A DAY (187.5 ML, QD (187.5 MG XL DAILY)
     Route: 065
     Dates: start: 202103
  2. VENLAFAXINE [Suspect]
     Active Substance: VENLAFAXINE HYDROCHLORIDE
     Indication: Depression
     Dosage: UNK
     Route: 065
     Dates: end: 202210
  3. DATSCAN [Suspect]
     Active Substance: IODINE\IOFLUPANE I-123
     Indication: Single photon emission computerised tomogram
     Dosage: UNK, TOTAL
     Route: 065
     Dates: start: 20211026, end: 20211026

REACTIONS (2)
  - False positive radioisotope investigation result [Recovered/Resolved]
  - Drug interaction [Recovered/Resolved]

NARRATIVE: CASE EVENT DATE: 20211026
